FAERS Safety Report 5344254-6 (Version None)
Quarter: 2007Q2

REPORT INFORMATION
  Report Type: 
  Country: None (occurrence: None)
  Receive Date: 20070416
  Receipt Date: 20070103
  Transmission Date: 20071010
  Serious: No
  Sender: FDA-Public Use
  Company Number: 2007SP000052

PATIENT
  Age: 59 Year
  Sex: Female
  Weight: 73.4827 kg

DRUGS (3)
  1. LUNESTA [Suspect]
     Indication: INSOMNIA
     Dosage: 2 MG; HS : 2 MG : ORAL
     Route: 048
     Dates: start: 20060919, end: 20061101
  2. LUNESTA [Suspect]
     Indication: INSOMNIA
     Dosage: 2 MG; HS : 2 MG : ORAL
     Route: 048
     Dates: start: 20070101
  3. SYNTHROID [Concomitant]

REACTIONS (1)
  - DYSGEUSIA [None]
